FAERS Safety Report 6391893-X (Version None)
Quarter: 2009Q4

REPORT INFORMATION
  Report Type: 
  Country: None (occurrence: None)
  Receive Date: 20091007
  Receipt Date: 20091001
  Transmission Date: 20100525
  Serious: Yes (Other)
  Sender: FDA-Public Use
  Company Number: FR-AMGEN-UK362326

PATIENT
  Sex: Female

DRUGS (5)
  1. ARANESP [Suspect]
     Indication: PRE-EXISTING DISEASE
     Dates: start: 20081112
  2. RITUXIMAB [Concomitant]
     Dates: start: 20081022, end: 20090409
  3. ENDOXAN [Concomitant]
     Dates: start: 20081022, end: 20090219
  4. NEULASTA [Concomitant]
     Dates: start: 20081112, end: 20081223
  5. NEUPOGEN [Concomitant]
     Dates: start: 20090123, end: 20090625

REACTIONS (1)
  - APLASIA PURE RED CELL [None]
